FAERS Safety Report 5802182-3 (Version None)
Quarter: 2008Q3

REPORT INFORMATION
  Report Type: 
  Country: None (occurrence: None)
  Receive Date: 20080707
  Receipt Date: 20080630
  Transmission Date: 20090109
  Serious: Yes (Death, Hospitalization)
  Sender: FDA-Public Use
  Company Number: US-PFIZER INC-2008052880

PATIENT
  Sex: Male
  Weight: 64 kg

DRUGS (15)
  1. ALDACTONE [Suspect]
     Route: 048
     Dates: start: 20080505
  2. AG-013,736 [Suspect]
     Indication: COLORECTAL CANCER METASTATIC
     Route: 048
  3. AVASTIN [Suspect]
     Indication: COLORECTAL CANCER METASTATIC
     Route: 042
  4. OXALIPLATIN [Suspect]
     Indication: COLORECTAL CANCER METASTATIC
     Route: 042
     Dates: start: 20080515
  5. LEUCOVORIN CALCIUM [Suspect]
     Indication: COLORECTAL CANCER METASTATIC
     Dates: start: 20080515
  6. FLUOROURACIL [Suspect]
     Indication: COLORECTAL CANCER METASTATIC
     Route: 042
     Dates: start: 20080515
  7. FLUOROURACIL [Suspect]
     Dosage: TEXT:4300MG CONTINUOUS  46 HR INFUSION
     Route: 042
     Dates: start: 20080515
  8. LASIX [Suspect]
     Route: 048
  9. NORCO [Concomitant]
     Dosage: TEXT:7.5/325MG
     Route: 048
     Dates: start: 20080505
  10. PROMETHAZINE HCL [Concomitant]
     Route: 048
     Dates: start: 20080604
  11. LEVOTHYROXINE SODIUM [Concomitant]
     Route: 048
     Dates: start: 20080605
  12. KYTRIL [Concomitant]
     Route: 042
     Dates: start: 20080606, end: 20080613
  13. DEXAMETHASONE [Concomitant]
     Route: 042
     Dates: start: 20080515
  14. LACTATED RINGER'S [Concomitant]
     Route: 042
     Dates: start: 20080606, end: 20080613
  15. ALOXI [Concomitant]
     Route: 042
     Dates: start: 20080515

REACTIONS (2)
  - CEREBROVASCULAR ACCIDENT [None]
  - DEHYDRATION [None]
